FAERS Safety Report 11585189 (Version 4)
Quarter: 2016Q1

REPORT INFORMATION
  Report Type: Report from Study
  Country: DE (occurrence: CL)
  Receive Date: 20151001
  Receipt Date: 20160119
  Transmission Date: 20160525
  Serious: Yes (Hospitalization, Other)
  Sender: FDA-Public Use
  Company Number: DE-ACTELION-A-NJ2015-124895

PATIENT
  Age: 44 Year
  Sex: Female

DRUGS (14)
  1. VENTAVIS [Suspect]
     Active Substance: ILOPROST
     Dosage: 5 ML, 8ID
     Route: 055
     Dates: start: 2015, end: 201512
  2. FOLIC ACID. [Concomitant]
     Active Substance: FOLIC ACID
     Dosage: UNK
  3. AZULFIDINE [Concomitant]
     Active Substance: SULFASALAZINE
     Dosage: UNK
  4. VENTAVIS [Suspect]
     Active Substance: ILOPROST
     Indication: PULMONARY HYPERTENSION
     Dosage: 5 ML, 8ID
     Route: 055
     Dates: start: 20150729, end: 20150901
  5. OMEPRAZOLE. [Concomitant]
     Active Substance: OMEPRAZOLE
     Dosage: UNK
  6. NATECAL D [Concomitant]
     Active Substance: CALCIUM CARBONATE\CHOLECALCIFEROL
     Dosage: UNK
  7. VENTAVIS [Suspect]
     Active Substance: ILOPROST
     Dosage: 5 ML, 8ID
     Route: 055
     Dates: start: 20150901
  8. AMITRIPTYLINE [Concomitant]
     Active Substance: AMITRIPTYLINE
     Dosage: UNK
  9. PREDNISONE. [Concomitant]
     Active Substance: PREDNISONE
     Dosage: UNK
  10. FUROSEMIDE. [Concomitant]
     Active Substance: FUROSEMIDE
     Dosage: UNK
  11. NEBIVOLOL. [Concomitant]
     Active Substance: NEBIVOLOL
  12. PLAQUINOL [Concomitant]
     Active Substance: HYDROXYCHLOROQUINE SULFATE
     Dosage: UNK
  13. SPIRONOLACTONE. [Concomitant]
     Active Substance: SPIRONOLACTONE
     Dosage: UNK
  14. SILDENAFIL. [Concomitant]
     Active Substance: SILDENAFIL
     Dosage: UNK

REACTIONS (11)
  - Intentional product use issue [Recovered/Resolved]
  - Choking sensation [Recovered/Resolved]
  - Hypercapnia [Unknown]
  - Drug prescribing error [Not Recovered/Not Resolved]
  - Blood gases abnormal [Recovering/Resolving]
  - General physical health deterioration [Unknown]
  - Insomnia [Unknown]
  - Oedema peripheral [Unknown]
  - Erythema [Recovering/Resolving]
  - Fatigue [Unknown]
  - Peripheral swelling [Unknown]

NARRATIVE: CASE EVENT DATE: 20151207
